FAERS Safety Report 8248720-5 (Version None)
Quarter: 2012Q1

REPORT INFORMATION
  Report Type: 
  Country: None (occurrence: None)
  Receive Date: 20120331
  Receipt Date: 20120327
  Transmission Date: 20120608
  Serious: Yes (Life-Threatening, Hospitalization, Other)
  Sender: FDA-Public Use
  Company Number: PHHO2010DE09086

PATIENT
  Sex: Male
  Weight: 82 kg

DRUGS (17)
  1. CYCLOSPORINE [Suspect]
     Indication: LIVER TRANSPLANT
     Dosage: 200 MG, BID
     Route: 048
     Dates: start: 20100526, end: 20100526
  2. HYDROCHLOROTHIAZIDE [Concomitant]
  3. MYCOPHENOLATE MOFETIL (CELLCEPT) [Concomitant]
     Indication: LIVER TRANSPLANT
  4. URSODIOL [Concomitant]
     Indication: BILE OUTPUT
  5. COTRIM DS [Concomitant]
  6. CALCIUM CARBONATE [Concomitant]
  7. URSO FALK [Concomitant]
  8. AMPHOTERICIN B [Concomitant]
  9. TURIXIN [Concomitant]
  10. NOVALGIN [Concomitant]
  11. AMLODIPINE [Suspect]
  12. TACROLIMUS [Concomitant]
  13. DIPIDOLOR [Concomitant]
  14. RAMIPRIL [Concomitant]
  15. EBRANTIL [Concomitant]
  16. METOPROLOL TARTRATE AND HYDROCHLOROTHIAZIDE [Concomitant]
  17. PANTOPRAZOLE [Concomitant]

REACTIONS (18)
  - SOMNOLENCE [None]
  - THROMBOCYTOPENIA [None]
  - HYPOTENSION [None]
  - AMBLYOPIA [None]
  - VOMITING [None]
  - HEMIPARESIS [None]
  - BRAIN OEDEMA [None]
  - NAUSEA [None]
  - HEMIANOPIA [None]
  - CEREBRAL HAEMORRHAGE [None]
  - PERSECUTORY DELUSION [None]
  - SUBDURAL HAEMATOMA [None]
  - POSTERIOR REVERSIBLE ENCEPHALOPATHY SYNDROME [None]
  - AGITATION [None]
  - GAIT DISTURBANCE [None]
  - BLOOD PRESSURE INCREASED [None]
  - HEADACHE [None]
  - AGGRESSION [None]
